FAERS Safety Report 8343193 (Version 5)
Quarter: 2012Q4

REPORT INFORMATION
  Report Type: 
  Country: US (occurrence: US)
  Receive Date: 20111202
  Receipt Date: 20121004
  Transmission Date: 20130627
  Serious: Yes (Hospitalization, Other)
  Sender: FDA-Public Use
  Company Number: US-009507513-2011SP044702

PATIENT
  Age: 30 None

DRUGS (4)
  1. NUVARING [Suspect]
     Indication: CONTRACEPTION
     Dates: start: 20090805, end: 20090925
  2. NUVARING [Suspect]
     Dates: start: 20090805, end: 20090925
  3. LEVOTHYROXINE SODIUM [Concomitant]
     Indication: HYPOTHYROIDISM
     Dates: start: 2003
  4. MAXALT [Concomitant]
     Indication: MIGRAINE
     Dates: start: 2008

REACTIONS (7)
  - Iron deficiency anaemia [Unknown]
  - Mesenteric vein thrombosis [Recovered/Resolved]
  - Ovarian cyst [Unknown]
  - Hypercoagulation [Unknown]
  - Mental disorder [Unknown]
  - Emotional disorder [Unknown]
  - Herpes simplex serology positive [Unknown]
